FAERS Safety Report 5466846-6 (Version None)
Quarter: 2007Q3

REPORT INFORMATION
  Report Type: 
  Country: None (occurrence: None)
  Receive Date: 20070925
  Receipt Date: 20070904
  Transmission Date: 20080115
  Serious: Yes (Hospitalization)
  Sender: FDA-Public Use
  Company Number: US-BRISTOL-MYERS SQUIBB COMPANY-13729215

PATIENT
  Age: 68 Year
  Sex: Male
  Weight: 86 kg

DRUGS (14)
  1. COUMADIN [Suspect]
     Indication: CARDIAC DISORDER
     Dosage: DOSING INTERRUPTED FOR PERIODS OF TIMES FROM AUG-2006 TO DEC-2006.
  2. PRINIVIL [Suspect]
     Route: 048
  3. FUROSEMIDE [Concomitant]
  4. METOPROLOL [Concomitant]
     Route: 048
  5. FINASTERIDE [Concomitant]
     Route: 048
  6. SIMVASTATIN [Concomitant]
  7. TAMSULOSIN HCL [Concomitant]
  8. ASPIRIN [Concomitant]
     Route: 048
  9. POTASSIUM CHLORIDE [Concomitant]
  10. COMBIVENT [Concomitant]
     Dosage: 1 DOSAGE FORM-TWO PUFFS
     Route: 055
  11. ASMANEX TWISTHALER [Concomitant]
     Route: 055
  12. ZANTAC [Concomitant]
  13. ZOSYN [Concomitant]
  14. ATENOLOL [Concomitant]

REACTIONS (7)
  - ANAPHYLACTIC SHOCK [None]
  - ARTHROPOD STING [None]
  - BRONCHITIS [None]
  - ELECTROCARDIOGRAM ABNORMAL [None]
  - HAEMOPTYSIS [None]
  - OEDEMA PERIPHERAL [None]
  - PLEURAL EFFUSION [None]
